FAERS Safety Report 15832357 (Version 3)
Quarter: 2019Q1

REPORT INFORMATION
  Report Type: Spontaneous
  Country: JP (occurrence: JP)
  Receive Date: 20190116
  Receipt Date: 20190214
  Transmission Date: 20190417
  Serious: Yes (Death)
  Sender: FDA-Public Use
  Company Number: JP-ELI_LILLY_AND_COMPANY-JP201901004876

PATIENT
  Age: 80 Year
  Sex: Male
  Weight: 40 kg

DRUGS (9)
  1. CALONAL [Concomitant]
     Active Substance: ACETAMINOPHEN
     Dosage: 300 MG, DAILY
     Route: 048
     Dates: start: 20181223, end: 20181223
  2. ISOTONIC SODIUM CHLORIDE SOLUTION [Concomitant]
     Active Substance: SODIUM CHLORIDE
     Dosage: 100 ML, DAILY
     Route: 065
     Dates: start: 20181224, end: 20181224
  3. GLUCOSE [Concomitant]
     Active Substance: DEXTROSE
     Dosage: 0.4 G, QID
     Route: 065
     Dates: start: 20181225, end: 20181225
  4. GLICLAZIDE [Concomitant]
     Active Substance: GLICLAZIDE
     Dosage: 20 MG, DAILY
     Route: 048
  5. GLUCOSE [Concomitant]
     Active Substance: DEXTROSE
     Dosage: 25 G, DAILY
     Route: 065
     Dates: start: 20181224, end: 20181225
  6. TRULICITY [Suspect]
     Active Substance: DULAGLUTIDE
     Indication: TYPE 2 DIABETES MELLITUS
     Dosage: 0.75 MG, WEEKLY (1/W)
     Route: 058
     Dates: start: 201805, end: 20181224
  7. LACTEC [Concomitant]
     Active Substance: CALCIUM CHLORIDE ANHYDROUS\POTASSIUM CHLORIDE\SODIUM CHLORIDE\SODIUM LACTATE
     Dosage: 500 ML, DAILY
     Route: 065
     Dates: start: 20181223, end: 20181224
  8. CEFTAZIDIME. [Concomitant]
     Active Substance: CEFTAZIDIME
     Dosage: 1 G, DAILY
     Route: 065
     Dates: start: 20181224, end: 20181224
  9. BIFIDOBACTERIUM NOS [Concomitant]
     Dosage: 1 DF, TID
     Route: 048

REACTIONS (2)
  - Marasmus [Fatal]
  - Hypoglycaemia [Not Recovered/Not Resolved]

NARRATIVE: CASE EVENT DATE: 20181224
